FAERS Safety Report 14873328 (Version 5)
Quarter: 2018Q3

REPORT INFORMATION
  Report Type: Spontaneous
  Country: US (occurrence: US)
  Receive Date: 20180510
  Receipt Date: 20180808
  Transmission Date: 20181010
  Serious: No
  Sender: FDA-Public Use
  Company Number: US-PFIZER INC-2018190970

PATIENT
  Age: 61 Year
  Sex: Female
  Weight: 83 kg

DRUGS (9)
  1. FOLIC ACID. [Concomitant]
     Active Substance: FOLIC ACID
     Dosage: 1 MG, DAILY
     Route: 048
  2. CYCLOBENZAPRINE HCL [Concomitant]
     Active Substance: CYCLOBENZAPRINE HYDROCHLORIDE
     Dosage: 5 MG, 2X/DAY
     Route: 048
  3. GABAPENTIN. [Concomitant]
     Active Substance: GABAPENTIN
     Dosage: 300 MG, (EVERY 1 ? 2 BEDTIMES FOR 3)
     Route: 048
  4. VERAMYST [Concomitant]
     Active Substance: FLUTICASONE FUROATE
     Dosage: 4 G, 1X/DAY (1?2 P VN QD )
  5. METFORMIN HCL [Concomitant]
     Active Substance: METFORMIN HYDROCHLORIDE
     Dosage: 500 MG, 1X/DAY (EVERY DAY WITH THE EVENING MEAL)
     Route: 048
  6. XELJANZ XR [Suspect]
     Active Substance: TOFACITINIB CITRATE
     Indication: RHEUMATOID ARTHRITIS
     Dosage: 11 MG, ALTERNATE DAY (QOD)
  7. XELJANZ XR [Suspect]
     Active Substance: TOFACITINIB CITRATE
     Dosage: 11 MG, 1X/DAY
     Route: 048
     Dates: start: 201805
  8. MENEST [Concomitant]
     Active Substance: ESTROGENS, ESTERIFIED
     Dosage: 1.25 MG, 1X/DAY
     Route: 048
  9. TRAMADOL. [Concomitant]
     Active Substance: TRAMADOL
     Indication: PAIN
     Dosage: 50 MG, 2X/DAY (EVERY 12 HOURS)
     Route: 048

REACTIONS (2)
  - Drug ineffective [Unknown]
  - Product use issue [Unknown]

NARRATIVE: CASE EVENT DATE: 20180731
